FAERS Safety Report 7243400-7 (Version None)
Quarter: 2011Q1

REPORT INFORMATION
  Report Type: 
  Country: None (occurrence: None)
  Receive Date: 20110125
  Receipt Date: 20110112
  Transmission Date: 20110831
  Serious: Yes (Other)
  Sender: FDA-Public Use
  Company Number: US-ELI_LILLY_AND_COMPANY-US201101003506

PATIENT
  Age: 35 Year
  Sex: Male

DRUGS (2)
  1. ANGIOMAX [Concomitant]
  2. EFFIENT [Suspect]
     Indication: STENT PLACEMENT
     Dosage: 60 MG, UNK

REACTIONS (1)
  - THROMBOSIS IN DEVICE [None]
